FAERS Safety Report 14387326 (Version 1)
Quarter: 2018Q1

REPORT INFORMATION
  Report Type: Spontaneous
  Country: US (occurrence: US)
  Receive Date: 20180115
  Receipt Date: 20180115
  Transmission Date: 20180509
  Serious: Yes (Other)
  Sender: FDA-Public Use
  Company Number: US-DSJP-DSU-2017-142966

PATIENT

DRUGS (1)
  1. BENICAR [Suspect]
     Active Substance: OLMESARTAN MEDOXOMIL
     Indication: PRODUCT USED FOR UNKNOWN INDICATION
     Dosage: 20 MG, QD
     Route: 048

REACTIONS (9)
  - Sprue-like enteropathy [Not Recovered/Not Resolved]
  - Inguinal hernia [Unknown]
  - Hiatus hernia [Unknown]
  - Anal fissure [Unknown]
  - Constipation [Not Recovered/Not Resolved]
  - Gastric ulcer [Unknown]
  - Haemorrhoids [Not Recovered/Not Resolved]
  - Gastrooesophageal reflux disease [Unknown]
  - Proctalgia [Unknown]

NARRATIVE: CASE EVENT DATE: 2005
